FAERS Safety Report 6215120-9 (Version None)
Quarter: 2009Q2

REPORT INFORMATION
  Report Type: 
  Country: None (occurrence: None)
  Receive Date: 20090604
  Receipt Date: 20090603
  Transmission Date: 20091009
  Serious: Yes (Hospitalization)
  Sender: FDA-Public Use
  Company Number: US-PFIZER INC-2009152897

PATIENT
  Sex: Female
  Weight: 90.703 kg

DRUGS (5)
  1. GEODON [Suspect]
     Indication: MENTAL IMPAIRMENT
     Dosage: 80 MG, 1X/DAY
     Dates: start: 20060101
  2. GEODON [Suspect]
     Indication: PERSONALITY DISORDER
  3. ORAP [Suspect]
     Indication: TOURETTE'S DISORDER
     Dosage: 10 MG, 1X/DAY
     Dates: start: 20060101
  4. ORAP [Suspect]
     Indication: TIC
  5. ABILIFY [Concomitant]
     Dosage: 10 MG, UNK

REACTIONS (7)
  - ANGER [None]
  - DRUG INEFFECTIVE [None]
  - DRUG INTOLERANCE [None]
  - LETHARGY [None]
  - SOMNOLENCE [None]
  - TIC [None]
  - TREMOR [None]
